FAERS Safety Report 19486597 (Version 1)
Quarter: 2021Q3

REPORT INFORMATION
  Report Type: Spontaneous
  Country: US (occurrence: US)
  Receive Date: 20210702
  Receipt Date: 20210702
  Transmission Date: 20211014
  Serious: No
  Sender: FDA-Public Use
  Company Number: US-UPSHER-SMITH LABORATORIES, LLC-2020USL00591

PATIENT
  Sex: Male
  Weight: 69.4 kg

DRUGS (11)
  1. TESTOSTERONE. [Suspect]
     Active Substance: TESTOSTERONE
     Indication: SEXUAL DYSFUNCTION
  2. UNSPECIFIED STATIN THERAPY [Concomitant]
  3. TESTOSTERONE. [Suspect]
     Active Substance: TESTOSTERONE
     Indication: LOSS OF LIBIDO
     Dosage: 50 MG, 1X/DAY ALTERNATING SHOULDERS
     Route: 061
     Dates: start: 2020, end: 2020
  4. TESTOSTERONE. [Suspect]
     Active Substance: TESTOSTERONE
     Indication: OSTEOPENIA
  5. TESTOSTERONE. [Suspect]
     Active Substance: TESTOSTERONE
     Indication: SEXUAL DYSFUNCTION
  6. TESTOSTERONE. [Suspect]
     Active Substance: TESTOSTERONE
     Indication: OSTEOPENIA
  7. TESTOSTERONE. [Suspect]
     Active Substance: TESTOSTERONE
     Indication: FATIGUE
  8. TESTOSTERONE. [Suspect]
     Active Substance: TESTOSTERONE
     Indication: LOSS OF LIBIDO
     Dosage: 50 MG, 1X/DAY ALTERNATING SHOULDERS
     Route: 061
     Dates: start: 2020
  9. TESTOSTERONE. [Suspect]
     Active Substance: TESTOSTERONE
     Indication: FATIGUE
  10. TESTOSTERONE. [Suspect]
     Active Substance: TESTOSTERONE
     Indication: MALAISE
  11. TESTOSTERONE. [Suspect]
     Active Substance: TESTOSTERONE
     Indication: MALAISE

REACTIONS (2)
  - Therapeutic product effect decreased [Not Recovered/Not Resolved]
  - Product residue present [Recovered/Resolved]

NARRATIVE: CASE EVENT DATE: 2020
